FAERS Safety Report 17398016 (Version 1)
Quarter: 2020Q1

REPORT INFORMATION
  Report Type: Spontaneous
  Country: US (occurrence: US)
  Receive Date: 20200210
  Receipt Date: 20200210
  Transmission Date: 20200409
  Serious: Yes (Hospitalization)
  Sender: FDA-Public Use
  Company Number: US-VAYAPHARMA-2017-US-017275

PATIENT
  Sex: Female

DRUGS (1)
  1. VAYACOG (NON-SPECIFIC) [Suspect]
     Active Substance: DOCONEXENT\ICOSAPENT\PHOSPHATIDYL SERINE
     Indication: LIPID METABOLISM DISORDER
     Route: 065

REACTIONS (3)
  - Constipation [Unknown]
  - Loss of personal independence in daily activities [Unknown]
  - Abdominal pain upper [Unknown]
